FAERS Safety Report 7816545-8 (Version None)
Quarter: 2011Q4

REPORT INFORMATION
  Report Type: 
  Country: None (occurrence: None)
  Receive Date: 20111017
  Receipt Date: 20111012
  Transmission Date: 20120403
  Serious: Yes (Hospitalization, Other)
  Sender: FDA-Public Use
  Company Number: DE-PFIZER INC-2011244308

PATIENT
  Sex: Male

DRUGS (2)
  1. LYRICA [Suspect]
     Indication: RESTLESSNESS
     Dosage: 1200-1500 MG/D, UNK
     Route: 048
     Dates: start: 20100101, end: 20110201
  2. METHADONE [Suspect]
     Indication: DRUG DEPENDENCE
     Dosage: 65 MG, UNK
     Route: 048
     Dates: start: 20070101

REACTIONS (1)
  - DRUG WITHDRAWAL SYNDROME [None]
